FAERS Safety Report 14582129 (Version 2)
Quarter: 2020Q3

REPORT INFORMATION
  Report Type: Spontaneous
  Country: FR (occurrence: FR)
  Receive Date: 20180228
  Receipt Date: 20200825
  Transmission Date: 20201102
  Serious: No
  Sender: FDA-Public Use
  Company Number: PHHY2018FR020179

PATIENT
  Age: 32 Year
  Sex: Male
  Weight: 85 kg

DRUGS (7)
  1. LANSOPRAZOLE. [Suspect]
     Active Substance: LANSOPRAZOLE
     Route: 048
  2. KLIPAL [Suspect]
     Active Substance: ACETAMINOPHEN\CODEINE PHOSPHATE
     Indication: PAIN
     Dosage: UNK (1 A LA DEMANDE)
     Route: 048
  3. KLIPAL [Suspect]
     Active Substance: ACETAMINOPHEN\CODEINE PHOSPHATE
     Dosage: 1 ? LA DEMANDE
     Route: 048
  4. ANAFRANIL [Suspect]
     Active Substance: CLOMIPRAMINE HYDROCHLORIDE
     Indication: PAIN
     Dosage: UNK
     Route: 048
     Dates: start: 20170215, end: 20170425
  5. DICODIN [Suspect]
     Active Substance: DIHYDROCODEINE
     Indication: PAIN
     Dosage: 2 DF, UNK
     Route: 048
     Dates: start: 20161122, end: 20170713
  6. LYRICA [Suspect]
     Active Substance: PREGABALIN
     Indication: PAIN
     Dosage: UNK
     Route: 048
     Dates: start: 20161122, end: 20170713
  7. LANSOPRAZOLE. [Suspect]
     Active Substance: LANSOPRAZOLE
     Indication: PRODUCT USED FOR UNKNOWN INDICATION
     Dosage: UNK
     Route: 048

REACTIONS (1)
  - Hepatitis [Recovered/Resolved]

NARRATIVE: CASE EVENT DATE: 201704
